FAERS Safety Report 20776425 (Version 1)
Quarter: 2022Q2

REPORT INFORMATION
  Report Type: Spontaneous
  Country: AT (occurrence: AT)
  Receive Date: 20220502
  Receipt Date: 20220502
  Transmission Date: 20220720
  Serious: Yes (Death, Other)
  Sender: FDA-Public Use
  Company Number: AT-ROCHE-3069928

PATIENT
  Age: 50 Year
  Sex: Female

DRUGS (8)
  1. CARBOPLATIN [Suspect]
     Active Substance: CARBOPLATIN
     Indication: Diffuse large B-cell lymphoma
     Dosage: AUC 5 AT DAY 2
     Route: 065
  2. ETOPOSIDE [Suspect]
     Active Substance: ETOPOSIDE
     Indication: Diffuse large B-cell lymphoma
     Dosage: 100 MG/M2 AT DAY 1-3
     Route: 065
  3. RITUXAN [Suspect]
     Active Substance: RITUXIMAB
     Indication: Diffuse large B-cell lymphoma
     Dosage: UNK
     Route: 065
  4. IFOSFAMIDE [Suspect]
     Active Substance: IFOSFAMIDE
     Indication: Diffuse large B-cell lymphoma
     Dosage: 5000 MG/M2, DAY 2
     Route: 065
  5. POLIVY [Suspect]
     Active Substance: POLATUZUMAB VEDOTIN-PIIQ
     Indication: Diffuse large B-cell lymphoma
     Dosage: 1.8 MG/KG AT DAY 0
     Route: 065
  6. OBINUTUZUMAB [Suspect]
     Active Substance: OBINUTUZUMAB
     Indication: Diffuse large B-cell lymphoma
     Dosage: CYCLES 1-3 G-CHOP
     Route: 042
     Dates: start: 202002, end: 202004
  7. OBINUTUZUMAB [Suspect]
     Active Substance: OBINUTUZUMAB
     Dosage: CYCLE 4-6 G-CHOP
     Route: 042
     Dates: start: 202004, end: 202006
  8. OBINUTUZUMAB [Suspect]
     Active Substance: OBINUTUZUMAB
     Dosage: UNK
     Route: 042
     Dates: start: 20200221

REACTIONS (22)
  - Neoplasm progression [Fatal]
  - Malignant transformation [Fatal]
  - Blood creatinine increased [Fatal]
  - Ascites [Fatal]
  - Angiopathy [Fatal]
  - Peripheral swelling [Fatal]
  - Abdominal lymphadenopathy [Fatal]
  - Thrombocytopenia [Unknown]
  - Cytokine release syndrome [Unknown]
  - Hydronephrosis [Unknown]
  - Pyelonephritis [Unknown]
  - Colitis [Unknown]
  - Anaemia [Unknown]
  - Febrile neutropenia [Unknown]
  - Haematuria [Unknown]
  - Vomiting [Unknown]
  - Abdominal pain lower [Unknown]
  - Tinnitus [Unknown]
  - Urinary tract disorder [Unknown]
  - C-reactive protein increased [Unknown]
  - Pyrexia [Unknown]
  - Off label use [Unknown]

NARRATIVE: CASE EVENT DATE: 20210315
